FAERS Safety Report 4502340-4 (Version None)
Quarter: 2004Q4

REPORT INFORMATION
  Report Type: 
  Country: None (occurrence: None)
  Receive Date: 20041110
  Receipt Date: 20041025
  Transmission Date: 20050328
  Serious: Yes (Other)
  Sender: FDA-Public Use
  Company Number: 210276

PATIENT
  Sex: Female

DRUGS (1)
  1. HERCEPTIN [Suspect]
     Dosage: INTRAVENOUS
     Route: 042

REACTIONS (1)
  - PULMONARY FIBROSIS [None]
